FAERS Safety Report 7607315-4 (Version None)
Quarter: 2011Q3

REPORT INFORMATION
  Report Type: 
  Country: None (occurrence: None)
  Receive Date: 20110712
  Receipt Date: 20110712
  Transmission Date: 20111222
  Serious: Yes (Hospitalization)
  Sender: FDA-Public Use
  Company Number: None

PATIENT
  Sex: Male
  Weight: 103.4 kg

DRUGS (2)
  1. TAXOL [Suspect]
     Dosage: 555MG
  2. GEMCITABINE HYDROCHLORIDE [Suspect]
     Dosage: 4230MG

REACTIONS (3)
  - NODAL ARRHYTHMIA [None]
  - ARRHYTHMIA SUPRAVENTRICULAR [None]
  - ATRIAL FIBRILLATION [None]
